FAERS Safety Report 9796227 (Version 2)
Quarter: 2014Q1

REPORT INFORMATION
  Report Type: Spontaneous
  Country: CA (occurrence: CA)
  Receive Date: 20140103
  Receipt Date: 20140103
  Transmission Date: 20141002
  Serious: Yes (Disabling)
  Sender: FDA-Public Use
  Company Number: CA-JNJFOC-20131213676

PATIENT
  Sex: Female
  Weight: 58.96 kg

DRUGS (8)
  1. XARELTO [Suspect]
     Indication: CEREBROVASCULAR ACCIDENT PROPHYLAXIS
     Route: 048
  2. XARELTO [Suspect]
     Indication: ARRHYTHMIA
     Route: 048
  3. VITAMIN  D [Concomitant]
     Route: 065
  4. DOMPERIDONE [Concomitant]
     Route: 065
  5. NORVASC [Concomitant]
     Route: 065
  6. PANTOLOC [Concomitant]
     Route: 065
  7. SYNTHROID [Concomitant]
     Route: 065
  8. METOPROLOL [Concomitant]
     Route: 065

REACTIONS (5)
  - Torticollis [Recovering/Resolving]
  - Pain in extremity [Recovering/Resolving]
  - Sensation of heaviness [Recovering/Resolving]
  - Musculoskeletal stiffness [Not Recovered/Not Resolved]
  - Headache [Not Recovered/Not Resolved]
